FAERS Safety Report 6724542 (Version 6)
Quarter: 2014Q4

REPORT INFORMATION
  Report Type: Spontaneous
  Country: US (occurrence: US)
  Receive Date: 20080812
  Receipt Date: 20141204
  Transmission Date: 20150529
  Serious: Yes (Life-Threatening, Hospitalization, Other)
  Sender: FDA-Public Use
  Company Number: US-AMGEN-QUU299122

PATIENT
  Age: 62 Year
  Sex: Male
  Weight: 109.2 kg

DRUGS (18)
  1. LUNESTA [Suspect]
     Active Substance: ESZOPICLONE
     Indication: INSOMNIA
     Dosage: 3 MG, AS NECESSARY
     Route: 048
     Dates: start: 2007, end: 20080717
  2. LUNESTA [Suspect]
     Active Substance: ESZOPICLONE
     Dosage: 12 MG, AS NECESSARY
     Route: 048
     Dates: end: 20080817
  3. CELEBREX [Concomitant]
     Active Substance: CELECOXIB
     Dosage: UNK
  4. PROZAC [Concomitant]
     Active Substance: FLUOXETINE HYDROCHLORIDE
     Dosage: UNK
  5. OXYCONTIN [Concomitant]
     Active Substance: OXYCODONE HYDROCHLORIDE
     Dosage: UNK
  6. PERCOCET [Concomitant]
     Active Substance: ACETAMINOPHEN\OXYCODONE HYDROCHLORIDE
     Dosage: UNK
  7. FINASTERIDE. [Concomitant]
     Active Substance: FINASTERIDE
     Dosage: UNK
  8. ATIVAN [Concomitant]
     Active Substance: LORAZEPAM
     Dosage: UNK
  9. XANAX [Concomitant]
     Active Substance: ALPRAZOLAM
     Dosage: UNK
     Dates: end: 20080724
  10. LAMICTAL [Concomitant]
     Active Substance: LAMOTRIGINE
     Dosage: UNK
  11. ATENOLOL. [Concomitant]
     Active Substance: ATENOLOL
     Dosage: UNK
  12. ENBREL [Suspect]
     Active Substance: ETANERCEPT
     Indication: RHEUMATOID ARTHRITIS
     Dosage: 50 MG, QWK
     Route: 065
     Dates: start: 200805, end: 200807
  13. LUNESTA [Suspect]
     Active Substance: ESZOPICLONE
     Dosage: 6 MG, AS NECESSARY
     Route: 048
  14. LUNESTA [Suspect]
     Active Substance: ESZOPICLONE
     Dosage: 9 MG, AS NECESSARY
     Route: 048
  15. METHOTREXATE [Concomitant]
     Active Substance: METHOTREXATE
     Dosage: 10 MG, QWK
     Route: 048
     Dates: start: 2003
  16. MIRAPEX [Concomitant]
     Active Substance: PRAMIPEXOLE DIHYDROCHLORIDE
     Dosage: UNK
  17. ZOCOR [Concomitant]
     Active Substance: SIMVASTATIN
     Dosage: UNK
  18. ABILIFY [Concomitant]
     Active Substance: ARIPIPRAZOLE
     Dosage: UNK

REACTIONS (45)
  - Transient ischaemic attack [Unknown]
  - Haematochezia [Unknown]
  - Somnolence [Unknown]
  - Oedema peripheral [Recovered/Resolved]
  - Lethargy [Unknown]
  - Mouth injury [Unknown]
  - Diarrhoea [Unknown]
  - Arthralgia [Not Recovered/Not Resolved]
  - Chest pain [Unknown]
  - Throat tightness [Recovered/Resolved]
  - Staphylococcal infection [Recovered/Resolved]
  - Headache [Unknown]
  - Cough [Unknown]
  - White blood cell count decreased [Recovered/Resolved]
  - Platelet count decreased [Recovered/Resolved]
  - Weight decreased [Unknown]
  - Mastication disorder [Unknown]
  - Chest discomfort [Unknown]
  - Asthenia [Recovered/Resolved]
  - Chills [Unknown]
  - Apparent life threatening event [Unknown]
  - Hypoglycaemia [Recovered/Resolved]
  - Pain in extremity [Not Recovered/Not Resolved]
  - Musculoskeletal stiffness [Recovered/Resolved]
  - Dysarthria [Unknown]
  - Staphylococcus test positive [Unknown]
  - Oropharyngeal pain [Recovered/Resolved]
  - Dermatitis [Unknown]
  - Delirium [Unknown]
  - Pulmonary congestion [Unknown]
  - Mouth haemorrhage [Unknown]
  - Febrile neutropenia [Unknown]
  - Pneumonia [Unknown]
  - Pruritus [Unknown]
  - Anxiety [Unknown]
  - Insomnia [Unknown]
  - Feeling cold [Unknown]
  - Oral candidiasis [Unknown]
  - Haemoptysis [Unknown]
  - Pancytopenia [Recovered/Resolved]
  - Fatigue [Unknown]
  - Gait disturbance [Unknown]
  - Dysphagia [Unknown]
  - Rash erythematous [Unknown]
  - Dyspnoea [Unknown]

NARRATIVE: CASE EVENT DATE: 2008
